FAERS Safety Report 5140242-3 (Version None)
Quarter: 2006Q4

REPORT INFORMATION
  Report Type: 
  Country: None (occurrence: None)
  Receive Date: 20061031
  Receipt Date: 20060720
  Transmission Date: 20070319
  Serious: Yes (Hospitalization)
  Sender: FDA-Public Use
  Company Number: US-AMGEN-KDL187016

PATIENT
  Sex: Male

DRUGS (1)
  1. ENBREL [Suspect]
     Indication: RHEUMATOID ARTHRITIS
     Route: 058
     Dates: start: 19970901

REACTIONS (6)
  - ARTHRALGIA [None]
  - BACK PAIN [None]
  - JOINT SWELLING [None]
  - KNEE ARTHROPLASTY [None]
  - MUSCULAR WEAKNESS [None]
  - PAIN IN EXTREMITY [None]
